FAERS Safety Report 21752320 (Version 2)
Quarter: 2023Q1

REPORT INFORMATION
  Report Type: Spontaneous
  Country: US (occurrence: US)
  Receive Date: 20221220
  Receipt Date: 20230106
  Transmission Date: 20230417
  Serious: No
  Sender: FDA-Public Use
  Company Number: US-JNJFOC-20221165295

PATIENT
  Age: 33 Year
  Sex: Female
  Weight: 98.972 kg

DRUGS (1)
  1. TREMFYA [Suspect]
     Active Substance: GUSELKUMAB
     Indication: Psoriasis
     Route: 065
     Dates: start: 20221123

REACTIONS (2)
  - Needle issue [Unknown]
  - Product dose omission issue [Unknown]
